FAERS Safety Report 14944172 (Version 2)
Quarter: 2019Q1

REPORT INFORMATION
  Report Type: Spontaneous
  Country: IT (occurrence: IT)
  Receive Date: 20180528
  Receipt Date: 20190315
  Transmission Date: 20190417
  Serious: Yes (Hospitalization, Other)
  Sender: FDA-Public Use
  Company Number: PHHY2017IT069297

PATIENT
  Age: 86 Year
  Sex: Male

DRUGS (3)
  1. AMOXICILLIN-CLAVULANIC ACID [Suspect]
     Active Substance: AMOXICILLIN\CLAVULANIC ACID
     Indication: BRONCHITIS
  2. ATORVASTATIN [Suspect]
     Active Substance: ATORVASTATIN
     Indication: CORONARY ARTERY DISEASE
     Dosage: 10 MG, QD
     Route: 065
  3. AMOXICILLIN-CLAVULANIC ACID [Suspect]
     Active Substance: AMOXICILLIN\CLAVULANIC ACID
     Indication: LYMPHOEDEMA
     Dosage: 1 G, BID
     Route: 065

REACTIONS (7)
  - Hepatitis cholestatic [Unknown]
  - Chromaturia [Recovering/Resolving]
  - Jaundice [Recovering/Resolving]
  - Muscular weakness [Recovering/Resolving]
  - Drug interaction [Recovering/Resolving]
  - Movement disorder [Recovering/Resolving]
  - Rhabdomyolysis [Recovering/Resolving]
